FAERS Safety Report 8358390-3 (Version None)
Quarter: 2012Q2

REPORT INFORMATION
  Report Type: 
  Country: None (occurrence: None)
  Receive Date: 20120514
  Receipt Date: 20110513
  Transmission Date: 20120825
  Serious: No
  Sender: FDA-Public Use
  Company Number: US-ALEXION-A201100703

PATIENT
  Sex: Male

DRUGS (2)
  1. METHADONE HCL [Concomitant]
     Dosage: UNK
  2. SOLIRIS [Suspect]
     Indication: PAROXYSMAL NOCTURNAL HAEMOGLOBINURIA
     Dosage: UNK
     Route: 042

REACTIONS (1)
  - PACKED RED BLOOD CELL TRANSFUSION [None]
